FAERS Safety Report 17473606 (Version 1)
Quarter: 2020Q1

REPORT INFORMATION
  Report Type: Spontaneous
  Country: US (occurrence: US)
  Receive Date: 20200228
  Receipt Date: 20200228
  Transmission Date: 20200409
  Serious: No
  Sender: FDA-Public Use
  Company Number: None

PATIENT
  Age: 65 Year
  Sex: Male
  Weight: 71.21 kg

DRUGS (22)
  1. DICLONFENAC 1% [Concomitant]
  2. DIOVAN [Concomitant]
     Active Substance: VALSARTAN
  3. ONDANSETRON [Concomitant]
     Active Substance: ONDANSETRON
  4. MULTIVIT [Concomitant]
     Active Substance: VITAMINS
  5. NEXIUM [Concomitant]
     Active Substance: ESOMEPRAZOLE MAGNESIUM
  6. PROCHLORPERAZINE. [Concomitant]
     Active Substance: PROCHLORPERAZINE
  7. DETROL [Concomitant]
     Active Substance: TOLTERODINE TARTRATE
  8. SPIRONOLACTONE. [Concomitant]
     Active Substance: SPIRONOLACTONE
  9. ASA 81MG [Concomitant]
     Active Substance: ASPIRIN
  10. IMITREX [Concomitant]
     Active Substance: SUMATRIPTAN SUCCINATE
  11. METHOCARBAMOL. [Concomitant]
     Active Substance: METHOCARBAMOL
  12. CARFATE [Concomitant]
  13. CELEXA [Concomitant]
     Active Substance: CITALOPRAM HYDROBROMIDE
  14. CALCIUM 600 + D [Concomitant]
     Active Substance: CALCIUM\VITAMIN D
  15. MIRALAX [Concomitant]
     Active Substance: POLYETHYLENE GLYCOL 3350
  16. PROAIR HFA [Concomitant]
     Active Substance: ALBUTEROL SULFATE
  17. CAPECTIABINE [Suspect]
     Active Substance: CAPECITABINE
     Indication: BREAST CANCER
     Route: 048
  18. CLARTIN [Concomitant]
  19. LORAZEPAM. [Concomitant]
     Active Substance: LORAZEPAM
  20. ALPRAZOLAM. [Concomitant]
     Active Substance: ALPRAZOLAM
  21. ATENOLOL. [Concomitant]
     Active Substance: ATENOLOL
  22. OXYCODONE [Concomitant]
     Active Substance: OXYCODONE

REACTIONS (1)
  - Palmar-plantar erythrodysaesthesia syndrome [None]
